FAERS Safety Report 20959631 (Version 1)
Quarter: 2022Q2

REPORT INFORMATION
  Report Type: Spontaneous
  Country: US (occurrence: US)
  Receive Date: 20220614
  Receipt Date: 20220614
  Transmission Date: 20220721
  Serious: Yes (Hospitalization, Other)
  Sender: FDA-Public Use
  Company Number: US-JAZZ-2022-US-014888

PATIENT
  Sex: Female
  Weight: 24.036 kg

DRUGS (2)
  1. EPIDIOLEX [Suspect]
     Active Substance: CANNABIDIOL
     Indication: Lennox-Gastaut syndrome
     Dosage: 2 MILLILITER, BID
     Route: 048
     Dates: start: 20220105
  2. EPIDIOLEX [Suspect]
     Active Substance: CANNABIDIOL
     Indication: Partial seizures

REACTIONS (3)
  - Seizure [Unknown]
  - Somnolence [Unknown]
  - Crying [Unknown]

NARRATIVE: CASE EVENT DATE: 20220101
